FAERS Safety Report 14116179 (Version 1)
Quarter: 2017Q4

REPORT INFORMATION
  Report Type: Spontaneous
  Country: US (occurrence: US)
  Receive Date: 20171023
  Receipt Date: 20171023
  Transmission Date: 20180321
  Serious: Yes (Other)
  Sender: FDA-Public Use
  Company Number: US-MUNDIPHARMA DS AND PHARMACOVIGILANCE-USA-2017-0138345

PATIENT
  Sex: Female

DRUGS (2)
  1. OXYCODONE HYDROCHLORIDE (SIMILAR TO NDA 22-272) [Suspect]
     Active Substance: OXYCODONE HYDROCHLORIDE
     Indication: DRUG USE DISORDER
     Dosage: (13 X 30 MG) 390 MG, UNK
     Route: 048
  2. OXYCONTIN [Suspect]
     Active Substance: OXYCODONE HYDROCHLORIDE
     Indication: DRUG USE DISORDER
     Dosage: (5 X 80 MG) 400 MG, UNK
     Route: 048

REACTIONS (13)
  - Drug abuse [Recovering/Resolving]
  - Euphoric mood [Unknown]
  - Abdominal pain upper [Unknown]
  - Insomnia [Unknown]
  - Vomiting [Unknown]
  - Malaise [Unknown]
  - Drug dependence [Recovering/Resolving]
  - Impaired driving ability [Unknown]
  - Pallor [Unknown]
  - Drug withdrawal syndrome [Unknown]
  - Diarrhoea [Unknown]
  - Drug tolerance [Unknown]
  - Pain [Unknown]
